FAERS Safety Report 5843888-X (Version None)
Quarter: 2008Q3

REPORT INFORMATION
  Report Type: 
  Country: None (occurrence: None)
  Receive Date: 20080811
  Receipt Date: 20080804
  Transmission Date: 20090109
  Serious: Yes (Death, Hospitalization)
  Sender: FDA-Public Use
  Company Number: 82007SP011820

PATIENT
  Age: 46 Year
  Sex: Male
  Weight: 56 kg

DRUGS (13)
  1. TEMODAL [Suspect]
     Indication: OLIGODENDROGLIOMA
     Dosage: SEE IMAGE
     Route: 048
     Dates: start: 20060929, end: 20061003
  2. TEMODAL [Suspect]
     Indication: OLIGODENDROGLIOMA
     Dosage: SEE IMAGE
     Route: 048
     Dates: start: 20061101, end: 20061105
  3. TEMODAL [Suspect]
     Indication: OLIGODENDROGLIOMA
     Dosage: SEE IMAGE
     Route: 048
     Dates: start: 20061205, end: 20061209
  4. TEMODAL [Suspect]
     Indication: OLIGODENDROGLIOMA
     Dosage: SEE IMAGE
     Route: 048
     Dates: start: 20070205, end: 20070209
  5. TEMODAL [Suspect]
     Indication: OLIGODENDROGLIOMA
     Dosage: SEE IMAGE
     Route: 048
     Dates: start: 20070305, end: 20070309
  6. TEMODAL [Suspect]
     Indication: OLIGODENDROGLIOMA
     Dosage: SEE IMAGE
     Route: 048
     Dates: start: 20070404, end: 20070408
  7. CARBOPLATIN [Suspect]
     Indication: DRUG USE FOR UNKNOWN INDICATION
     Dosage: IV
     Route: 042
     Dates: start: 20070525, end: 20070525
  8. RIVOTRIL [Concomitant]
  9. EXCEGRIN [Concomitant]
  10. LANSOPRAZOLE [Concomitant]
  11. MAGMITT [Concomitant]
  12. NASEA-OD [Concomitant]
  13. ETOPOSIDE [Suspect]
     Indication: DRUG USE FOR UNKNOWN INDICATION
     Dosage: IV
     Route: 042
     Dates: start: 20070525, end: 20070527

REACTIONS (7)
  - ACUTE RESPIRATORY FAILURE [None]
  - BONE MARROW FAILURE [None]
  - DISSEMINATED INTRAVASCULAR COAGULATION [None]
  - NEOPLASM PROGRESSION [None]
  - POSTOPERATIVE WOUND INFECTION [None]
  - PULMONARY ALVEOLAR HAEMORRHAGE [None]
  - SHOCK [None]
